FAERS Safety Report 9439282 (Version 1)
Quarter: 2013Q3

REPORT INFORMATION
  Report Type: Report from Study
  Country: FR (occurrence: FR)
  Receive Date: 20130804
  Receipt Date: 20130804
  Transmission Date: 20140515
  Serious: Yes (Hospitalization)
  Sender: FDA-Public Use
  Company Number: FR-ROCHE-1256644

PATIENT
  Sex: Male
  Weight: 62.5 kg

DRUGS (6)
  1. PEG-INTERFERON ALFA 2A [Suspect]
     Indication: HEPATITIS B
     Route: 058
     Dates: start: 20120713, end: 20130626
  2. BARACLUDE [Suspect]
     Indication: HEPATITIS B
     Route: 065
  3. AUGMENTIN [Concomitant]
     Indication: AGRANULOCYTOSIS
     Dosage: 500 MG
     Route: 065
     Dates: start: 20130625, end: 20130627
  4. AUGMENTIN [Concomitant]
     Route: 065
     Dates: start: 20130708, end: 20130718
  5. CIFLOX (FRANCE) [Concomitant]
     Indication: AGRANULOCYTOSIS
     Route: 065
     Dates: start: 20130625, end: 20130627
  6. FLAGYL [Concomitant]
     Indication: AGRANULOCYTOSIS
     Route: 065
     Dates: start: 20130708, end: 20130718

REACTIONS (1)
  - Febrile neutropenia [Recovered/Resolved]
